FAERS Safety Report 6662497-6 (Version None)
Quarter: 2010Q1

REPORT INFORMATION
  Report Type: 
  Country: None (occurrence: None)
  Receive Date: 20100331
  Receipt Date: 20100325
  Transmission Date: 20100710
  Serious: Yes (Death, Hospitalization, Other)
  Sender: FDA-Public Use
  Company Number: US-MERCK-0908USA02148

PATIENT
  Age: 55 Year
  Sex: Female

DRUGS (2)
  1. FOSAMAX [Suspect]
     Indication: OSTEOPOROSIS
     Route: 048
     Dates: start: 20030701, end: 20050601
  2. PLAVIX [Concomitant]
     Route: 065
     Dates: start: 20020101, end: 20070101

REACTIONS (18)
  - CHRONIC OBSTRUCTIVE PULMONARY DISEASE [None]
  - CORONARY ARTERY DISEASE [None]
  - DENTAL CARIES [None]
  - DRUG INEFFECTIVE [None]
  - HYPERTENSION [None]
  - HYPOAESTHESIA ORAL [None]
  - IMPAIRED HEALING [None]
  - LEFT VENTRICULAR HYPERTROPHY [None]
  - MYOCARDIAL INFARCTION [None]
  - ORAL INFECTION [None]
  - OSTEONECROSIS [None]
  - OSTEORADIONECROSIS [None]
  - PARAESTHESIA [None]
  - RESPIRATORY FAILURE [None]
  - SUPRAVENTRICULAR TACHYCARDIA [None]
  - SWELLING [None]
  - TRISMUS [None]
  - UPPER RESPIRATORY TRACT INFECTION [None]
